FAERS Safety Report 7491142-5 (Version None)
Quarter: 2011Q2

REPORT INFORMATION
  Report Type: 
  Country: None (occurrence: None)
  Receive Date: 20110519
  Receipt Date: 20110513
  Transmission Date: 20111010
  Serious: Yes (Death)
  Sender: FDA-Public Use
  Company Number: AT-ROCHE-777439

PATIENT
  Sex: Male
  Weight: 62 kg

DRUGS (4)
  1. FLUOROURACIL [Concomitant]
     Indication: COLORECTAL CANCER
     Dates: start: 20110309, end: 20110419
  2. BEVACIZUMAB [Suspect]
     Indication: COLORECTAL CANCER
     Route: 042
     Dates: start: 20110309, end: 20110419
  3. OXALIPLATIN [Concomitant]
     Indication: COLORECTAL CANCER
     Route: 042
     Dates: start: 20110309, end: 20110414
  4. LEUCOVORIN CALCIUM [Concomitant]
     Indication: COLORECTAL CANCER

REACTIONS (2)
  - TUMOUR NECROSIS [None]
  - DEATH [None]
